FAERS Safety Report 23987329 (Version 1)
Quarter: 2024Q2

REPORT INFORMATION
  Report Type: Spontaneous
  Country: US (occurrence: US)
  Receive Date: 20240618
  Receipt Date: 20240618
  Transmission Date: 20240715
  Serious: Yes (Other)
  Sender: FDA-Public Use
  Company Number: US-PFIZER INC-PV202400077958

PATIENT
  Age: 24 Year
  Sex: Male

DRUGS (5)
  1. AZITHROMYCIN [Suspect]
     Active Substance: AZITHROMYCIN
     Indication: COVID-19
     Dosage: UNK
  2. ALBUTEROL SULFATE [Suspect]
     Active Substance: ALBUTEROL SULFATE
     Indication: COVID-19
     Dosage: UNK
  3. MOLNUPIRAVIR [Suspect]
     Active Substance: MOLNUPIRAVIR
     Indication: COVID-19
     Dosage: UNK
  4. ARTEMETHER [Concomitant]
     Active Substance: ARTEMETHER
     Indication: Plasmodium falciparum infection
     Dosage: UNK
     Route: 048
  5. LUMEFANTRINE [Concomitant]
     Active Substance: LUMEFANTRINE
     Indication: Plasmodium falciparum infection
     Dosage: UNK

REACTIONS (2)
  - Encephalopathy [Unknown]
  - Off label use [Unknown]
